FAERS Safety Report 7325173-2 (Version None)
Quarter: 2011Q1

REPORT INFORMATION
  Report Type: 
  Country: None (occurrence: None)
  Receive Date: 20110302
  Receipt Date: 20110222
  Transmission Date: 20110831
  Serious: Yes (Other)
  Sender: FDA-Public Use
  Company Number: JP-ASTELLAS-2011JP001389

PATIENT
  Age: 90 Year
  Sex: Female

DRUGS (8)
  1. MAGLAX [Concomitant]
     Dosage: UNK
     Route: 048
  2. DIOVAN [Concomitant]
     Dosage: 40 MG, UNKNOWN/D
     Route: 048
  3. SIGMART [Concomitant]
     Dosage: 15 MG, UNKNOWN/D
     Route: 048
  4. HERBESSER [Concomitant]
     Dosage: 90 MG, UNKNOWN/D
     Route: 048
  5. SALMETEROL/FLUTICASONPROPIONAAT [Concomitant]
     Route: 055
  6. VESICARE [Suspect]
     Dosage: 2.5 MG, UNKNOWN/D
     Route: 048
     Dates: start: 20100901
  7. PURSENNID [Concomitant]
     Dosage: 12 MG, UNKNOWN/D
     Route: 048
  8. ANTOBRON [Concomitant]
     Dosage: 45 MG, UNKNOWN/D
     Route: 048

REACTIONS (2)
  - RETINAL HAEMORRHAGE [None]
  - VISUAL ACUITY REDUCED [None]
